FAERS Safety Report 15499343 (Version 1)
Quarter: 2018Q4

REPORT INFORMATION
  Report Type: Spontaneous
  Country: PL (occurrence: PL)
  Receive Date: 20181015
  Receipt Date: 20181015
  Transmission Date: 20190205
  Serious: Yes (Hospitalization, Other)
  Sender: FDA-Public Use
  Company Number: PL-GLAXOSMITHKLINE-PL2017204375

PATIENT
  Age: 62 Year
  Sex: Female

DRUGS (4)
  1. IBUPROFEN. [Suspect]
     Active Substance: IBUPROFEN
     Indication: PRODUCT USED FOR UNKNOWN INDICATION
     Dosage: UNK
     Route: 065
  2. DICLOFENAC [Suspect]
     Active Substance: DICLOFENAC
     Indication: PRODUCT USED FOR UNKNOWN INDICATION
     Dosage: UNK
     Route: 065
  3. AMOXICILLIN + CLAVULANIC ACID [Concomitant]
     Active Substance: AMOXICILLIN\CLAVULANIC ACID
     Indication: UPPER RESPIRATORY TRACT INFECTION
     Dosage: UNK
     Route: 065
  4. PARACETAMOL [Suspect]
     Active Substance: ACETAMINOPHEN
     Indication: PRODUCT USED FOR UNKNOWN INDICATION
     Dosage: UNK
     Route: 065

REACTIONS (14)
  - C-reactive protein increased [Unknown]
  - Oedema [Unknown]
  - Anaemia [Unknown]
  - Tubulointerstitial nephritis [Unknown]
  - Asthenia [Unknown]
  - Blood pressure increased [Unknown]
  - Urine analysis abnormal [Unknown]
  - Blood creatinine increased [Recovering/Resolving]
  - Skin lesion [Unknown]
  - Arthralgia [Unknown]
  - Hypoproteinaemia [Unknown]
  - Malaise [Unknown]
  - Hypoalbuminaemia [Unknown]
  - Complement factor decreased [Unknown]
